FAERS Safety Report 10452300 (Version 1)
Quarter: 2014Q3

REPORT INFORMATION
  Report Type: Spontaneous
  Country: US (occurrence: None)
  Receive Date: 20140912
  Receipt Date: 20140912
  Transmission Date: 20150326
  Serious: Yes (Disabling)
  Sender: FDA-Public Use
  Company Number: None

PATIENT
  Age: 70 Year
  Sex: Male
  Weight: 91.17 kg

DRUGS (1)
  1. ATENOLOL. [Suspect]
     Active Substance: ATENOLOL
     Indication: AORTIC ANEURYSM
     Dosage: 1 TABLET, QD, ORAL
     Route: 048
     Dates: start: 20120810, end: 20140701

REACTIONS (4)
  - Joint stiffness [None]
  - Musculoskeletal pain [None]
  - Musculoskeletal stiffness [None]
  - Sleep disorder [None]

NARRATIVE: CASE EVENT DATE: 20140701
